FAERS Safety Report 8989189 (Version 2)
Quarter: 2013Q1

REPORT INFORMATION
  Report Type: Spontaneous
  Country: GB (occurrence: GB)
  Receive Date: 20121228
  Receipt Date: 20130115
  Transmission Date: 20140127
  Serious: Yes (Other)
  Sender: FDA-Public Use
  Company Number: PHFR2012GB005922

PATIENT
  Age: 31 Year
  Sex: Male

DRUGS (5)
  1. CLOZARIL [Suspect]
     Indication: SCHIZOPHRENIA
     Dosage: 550 MG, UNK
     Route: 048
     Dates: start: 20110404
  2. FLUOXETINE [Concomitant]
     Dosage: 20 MG, UNK
     Route: 048
  3. OMEPRAZOLE [Concomitant]
     Dosage: 20 MG, UNK
     Route: 048
  4. DEPAKOTE [Concomitant]
     Dosage: 2 G, UNK
     Route: 048
  5. OXYBUTYNIN [Concomitant]
     Dosage: 5 MG, UNK
     Route: 048

REACTIONS (8)
  - Viral upper respiratory tract infection [Recovered/Resolved]
  - Upper respiratory tract infection [Recovered/Resolved]
  - Urinary tract infection viral [Recovered/Resolved]
  - Lower respiratory tract infection [Recovered/Resolved]
  - Chest pain [Recovered/Resolved]
  - Body temperature increased [Recovered/Resolved]
  - Tachycardia [Recovering/Resolving]
  - Heart rate increased [Unknown]
